FAERS Safety Report 18156625 (Version 2)
Quarter: 2020Q3

REPORT INFORMATION
  Report Type: Spontaneous
  Country: SG (occurrence: SG)
  Receive Date: 20200817
  Receipt Date: 20200819
  Transmission Date: 20201103
  Serious: Yes (Other)
  Sender: FDA-Public Use
  Company Number: NVSC2020SG225259

PATIENT
  Sex: Male

DRUGS (2)
  1. SIROLIMUS. [Suspect]
     Active Substance: SIROLIMUS
     Indication: PRODUCT USED FOR UNKNOWN INDICATION
     Dosage: UNK
     Route: 065
  2. EVEROLIMUS. [Suspect]
     Active Substance: EVEROLIMUS
     Indication: KLIPPEL-TRENAUNAY SYNDROME
     Dosage: UNK
     Route: 065

REACTIONS (5)
  - Drug intolerance [Unknown]
  - Mucosal inflammation [Unknown]
  - Gastrointestinal haemorrhage [Unknown]
  - Malformation venous [Unknown]
  - Off label use [Unknown]
